FAERS Safety Report 24659893 (Version 1)
Quarter: 2024Q4

REPORT INFORMATION
  Report Type: Spontaneous
  Country: US (occurrence: None)
  Receive Date: 20241125
  Receipt Date: 20241125
  Transmission Date: 20250115
  Serious: Yes (Hospitalization)
  Sender: Public
  Company Number: None

PATIENT
  Age: 70 Year
  Sex: Male

DRUGS (1)
  1. TEMOZOLOMIDE [Suspect]
     Active Substance: TEMOZOLOMIDE
     Indication: Brain cancer metastatic
     Dosage: FREQUENCY : DAILY;?
     Route: 048
     Dates: end: 202411

REACTIONS (1)
  - Hospice care [None]

NARRATIVE: CASE EVENT DATE: 20241101
